FAERS Safety Report 18291037 (Version 1)
Quarter: 2020Q3

REPORT INFORMATION
  Report Type: Spontaneous
  Country: US (occurrence: US)
  Receive Date: 20200922
  Receipt Date: 20200922
  Transmission Date: 20201103
  Serious: Yes (Other)
  Sender: FDA-Public Use
  Company Number: US-SPECGX-T202001831

PATIENT
  Sex: Male

DRUGS (1)
  1. OXYCODONE [Suspect]
     Active Substance: OXYCODONE
     Indication: PRODUCT USED FOR UNKNOWN INDICATION
     Dosage: UNK
     Route: 065

REACTIONS (28)
  - Small cell lung cancer [Unknown]
  - Hernia [Unknown]
  - Pelvic pain [Unknown]
  - Eye pain [Unknown]
  - Headache [Unknown]
  - Cardiac failure chronic [Unknown]
  - Lymphadenopathy [Unknown]
  - Fatigue [Unknown]
  - Abdominal pain upper [Unknown]
  - Myopathy [Unknown]
  - Rhinorrhoea [Unknown]
  - Angina pectoris [Unknown]
  - Dry eye [Unknown]
  - Decreased appetite [Unknown]
  - Inguinal hernia repair [Unknown]
  - Deafness [Unknown]
  - Blood cholesterol increased [Unknown]
  - Inflammation [Unknown]
  - Vision blurred [Unknown]
  - Nausea [Unknown]
  - Eye irritation [Unknown]
  - Burning sensation [Unknown]
  - Hypertension [Unknown]
  - Mood swings [Unknown]
  - Tooth fracture [Unknown]
  - Hypoaesthesia [Unknown]
  - Somnolence [Unknown]
  - Dyspnoea [Unknown]

NARRATIVE: CASE EVENT DATE: 2002
